FAERS Safety Report 19224312 (Version 1)
Quarter: 2021Q2

REPORT INFORMATION
  Report Type: Spontaneous
  Country: US (occurrence: US)
  Receive Date: 20210505
  Receipt Date: 20210505
  Transmission Date: 20210717
  Serious: No
  Sender: FDA-Public Use
  Company Number: US-ROCHE-2590876

PATIENT
  Sex: Male

DRUGS (1)
  1. ESBRIET [Suspect]
     Active Substance: PIRFENIDONE
     Indication: IDIOPATHIC PULMONARY FIBROSIS
     Dosage: TAKING 2 TABLETS EVERY MORNING, 3 IN AFTERNOON AND 2 AT NIGHT
     Route: 048
     Dates: start: 201912

REACTIONS (1)
  - Abdominal discomfort [Unknown]
